FAERS Safety Report 11104441 (Version 1)
Quarter: 2015Q2

REPORT INFORMATION
  Report Type: Spontaneous
  Country: US (occurrence: US)
  Receive Date: 20150511
  Receipt Date: 20150511
  Transmission Date: 20150821
  Serious: No
  Sender: FDA-Public Use
  Company Number: US-JNJFOC-20150412844

PATIENT
  Age: 33 Year
  Sex: Male
  Weight: 90.72 kg

DRUGS (1)
  1. INVEGA SUSTENNA [Suspect]
     Active Substance: PALIPERIDONE PALMITATE
     Indication: SCHIZOPHRENIA
     Route: 030
     Dates: start: 201311, end: 201407

REACTIONS (10)
  - Depression [Recovered/Resolved]
  - Akathisia [Unknown]
  - Cognitive disorder [Unknown]
  - Thought insertion [Unknown]
  - Anxiety [Unknown]
  - Apathy [Unknown]
  - Hallucination, auditory [Unknown]
  - Anhedonia [Unknown]
  - Weight increased [Unknown]
  - Obsessive-compulsive disorder [Unknown]

NARRATIVE: CASE EVENT DATE: 201311
